FAERS Safety Report 8599099 (Version 2)
Quarter: 2013Q2

REPORT INFORMATION
  Report Type: Spontaneous
  Country: US (occurrence: US)
  Receive Date: 20120605
  Receipt Date: 20130618
  Transmission Date: 20140414
  Serious: Yes (Hospitalization, Disabling)
  Sender: FDA-Public Use
  Company Number: US-ASTRAZENECA-2012SE34617

PATIENT
  Age: 68 Year
  Sex: Female
  Weight: 86.2 kg

DRUGS (5)
  1. NEXIUM [Suspect]
     Dosage: TWICE A DAY
     Route: 048
  2. OMEPRAZOLE [Suspect]
     Indication: GASTROOESOPHAGEAL REFLUX DISEASE
     Route: 048
  3. OMEPRAZOLE [Suspect]
     Indication: GASTROOESOPHAGEAL REFLUX DISEASE
     Route: 048
     Dates: start: 20100305
  4. VITAMINS [Concomitant]
     Indication: BONE DISORDER
     Dosage: ONCE A DAY
  5. RANITIDINE [Concomitant]
     Indication: DYSPEPSIA

REACTIONS (9)
  - Arthritis [Unknown]
  - Rheumatoid arthritis [Unknown]
  - Abasia [Unknown]
  - Osteoporosis [Unknown]
  - Multiple fractures [Unknown]
  - Lower limb fracture [Unknown]
  - Calcium deficiency [Unknown]
  - Vitamin D deficiency [Unknown]
  - Arthropathy [Unknown]
